FAERS Safety Report 15051689 (Version 2)
Quarter: 2018Q3

REPORT INFORMATION
  Report Type: Report from Study
  Country: US (occurrence: US)
  Receive Date: 20180622
  Receipt Date: 20180907
  Transmission Date: 20181010
  Serious: Yes (Hospitalization, Other)
  Sender: FDA-Public Use
  Company Number: US-APOPHARMA INC-2018AP014969

PATIENT
  Age: 12 Year
  Sex: Female
  Weight: 28 kg

DRUGS (4)
  1. JADENU [Concomitant]
     Active Substance: DEFERASIROX
     Indication: HAEMOCHROMATOSIS
  2. FERRIPROX [Suspect]
     Active Substance: DEFERIPRONE
     Indication: HAEMOCHROMATOSIS
  3. JADENU [Concomitant]
     Active Substance: DEFERASIROX
     Indication: THALASSAEMIA
     Dosage: 28 MG/KG, BID
     Route: 065
     Dates: start: 20160804, end: 20180506
  4. FERRIPROX [Suspect]
     Active Substance: DEFERIPRONE
     Indication: THALASSAEMIA
     Dosage: 88 MG/KG, TID
     Route: 048
     Dates: start: 20160311, end: 20180506

REACTIONS (6)
  - Agranulocytosis [Recovered/Resolved]
  - Viral infection [Recovered/Resolved]
  - Cough [Recovered/Resolved]
  - Pyrexia [Recovered/Resolved]
  - Chills [Recovered/Resolved]
  - Headache [Recovered/Resolved]

NARRATIVE: CASE EVENT DATE: 20180503
